FAERS Safety Report 14417500 (Version 1)
Quarter: 2018Q1

REPORT INFORMATION
  Report Type: Spontaneous
  Country: NG (occurrence: NG)
  Receive Date: 20180122
  Receipt Date: 20180122
  Transmission Date: 20180509
  Serious: Yes (Hospitalization)
  Sender: FDA-Public Use
  Company Number: NG-LUPIN PHARMACEUTICALS INC.-2015-02530

PATIENT
  Age: 62 Year
  Sex: Male

DRUGS (1)
  1. DONEPEZIL. [Suspect]
     Active Substance: DONEPEZIL
     Indication: DEMENTIA
     Dosage: UNK
     Route: 065

REACTIONS (1)
  - Jealous delusion [Recovering/Resolving]
